APPROVED DRUG PRODUCT: DIAZEPAM
Active Ingredient: DIAZEPAM
Strength: 20MG/4ML (5MG/ML)
Dosage Form/Route: GEL;RECTAL
Application: A091076 | Product #002 | TE Code: AB
Applicant: NOVEL LABORATORIES INC
Approved: May 30, 2023 | RLD: No | RS: No | Type: RX